FAERS Safety Report 18216759 (Version 1)
Quarter: 2020Q3

REPORT INFORMATION
  Report Type: Report from Study
  Country: AR (occurrence: AR)
  Receive Date: 20200901
  Receipt Date: 20200901
  Transmission Date: 20201103
  Serious: Yes (Other)
  Sender: FDA-Public Use
  Company Number: AR-AMGEN-ARGSL2020140213

PATIENT
  Sex: Female

DRUGS (1)
  1. VECTIBIX [Suspect]
     Active Substance: PANITUMUMAB
     Indication: COLORECTAL CANCER
     Dosage: UNK, Q2WK
     Route: 065

REACTIONS (3)
  - Blood pressure increased [Unknown]
  - Diabetes mellitus [Unknown]
  - Rash [Not Recovered/Not Resolved]
